FAERS Safety Report 12723680 (Version 3)
Quarter: 2016Q3

REPORT INFORMATION
  Report Type: Spontaneous
  Country: IT (occurrence: IT)
  Receive Date: 20160908
  Receipt Date: 20160928
  Transmission Date: 20161109
  Serious: Yes (Other)
  Sender: FDA-Public Use
  Company Number: IT-ROCHE-1827097

PATIENT
  Age: 82 Year
  Sex: Male

DRUGS (4)
  1. MADOPAR [Concomitant]
     Active Substance: BENSERAZIDE HYDROCHLORIDE\LEVODOPA
  2. SEROQUEL [Concomitant]
     Active Substance: QUETIAPINE FUMARATE
  3. ERIVEDGE [Suspect]
     Active Substance: VISMODEGIB
     Indication: BASAL CELL CARCINOMA
     Dosage: 150 MG -1 BOTTLE OF 28 CAPSULES
     Route: 065
     Dates: start: 201603, end: 201607
  4. TAVOR (LORAZEPAM) [Concomitant]
     Active Substance: LORAZEPAM

REACTIONS (5)
  - Hyperpyrexia [Unknown]
  - Depression [Unknown]
  - Asthenia [Unknown]
  - Muscle spasms [Unknown]
  - Hypotension [Unknown]

NARRATIVE: CASE EVENT DATE: 201607
